FAERS Safety Report 8320528-1 (Version None)
Quarter: 2012Q2

REPORT INFORMATION
  Report Type: 
  Country: None (occurrence: None)
  Receive Date: 20120430
  Receipt Date: 20120423
  Transmission Date: 20120825
  Serious: Yes (Hospitalization)
  Sender: FDA-Public Use
  Company Number: FR-PFIZER INC-2010125813

PATIENT
  Age: 55 Year
  Sex: Female

DRUGS (12)
  1. FLUOROURACIL [Suspect]
     Dosage: 815 MG, SINGLE (3RD COURSE)
     Route: 042
     Dates: start: 20091218, end: 20091218
  2. DEXRAZOXANE HYDROCHLORIDE [Suspect]
     Indication: BREAST CANCER STAGE II
     Dosage: 1630 MG, SINGLE
     Route: 042
     Dates: start: 20091218, end: 20091218
  3. EPIRUBICIN HYDROCHLORIDE [Suspect]
     Dosage: 2ND COURSE
     Route: 042
     Dates: start: 20091127
  4. CYCLOPHOSPHAMIDE [Suspect]
     Indication: BREAST CANCER STAGE II
     Dosage: 1ST COURSE
     Route: 042
     Dates: start: 20091106
  5. CYCLOPHOSPHAMIDE [Suspect]
     Dosage: 815 MG, SINGLE (3RD COURSE)
     Route: 042
     Dates: start: 20091218, end: 20091218
  6. EPIRUBICIN HYDROCHLORIDE [Suspect]
     Indication: BREAST CANCER STAGE II
     Dosage: 1ST COURSE
     Route: 042
     Dates: start: 20091106
  7. CYCLOPHOSPHAMIDE [Suspect]
     Dosage: 2ND COURSE
     Route: 042
     Dates: start: 20091127
  8. ASPIRIN [Concomitant]
  9. EPIRUBICIN HYDROCHLORIDE [Suspect]
     Dosage: 163 MG, SINGLE (3RD COURSE)
     Route: 042
     Dates: start: 20091218, end: 20091218
  10. FLUOROURACIL [Suspect]
     Dosage: 2ND COURSE
     Route: 042
     Dates: start: 20091127
  11. VOGALENE [Concomitant]
  12. FLUOROURACIL [Suspect]
     Indication: BREAST CANCER STAGE II
     Dosage: 1ST COURSE
     Route: 042
     Dates: start: 20091106

REACTIONS (7)
  - ERYTHEMA [None]
  - BLISTER [None]
  - PRURITUS [None]
  - RASH [None]
  - ERYSIPELAS [None]
  - DRUG HYPERSENSITIVITY [None]
  - URTICARIA [None]
